FAERS Safety Report 19352260 (Version 1)
Quarter: 2021Q2

REPORT INFORMATION
  Report Type: Report from Study
  Country: US (occurrence: US)
  Receive Date: 20210601
  Receipt Date: 20210601
  Transmission Date: 20210717
  Serious: Yes (Hospitalization)
  Sender: FDA-Public Use
  Company Number: NVSC2021US114574

PATIENT
  Age: 55 Year
  Sex: Male

DRUGS (1)
  1. ENTRESTO [Suspect]
     Active Substance: SACUBITRIL\VALSARTAN
     Indication: PRODUCT USED FOR UNKNOWN INDICATION
     Dosage: UNK UNK, BID
     Route: 048
     Dates: end: 20210507

REACTIONS (8)
  - Anaemia [Unknown]
  - Hypoacusis [Unknown]
  - Rhinorrhoea [Unknown]
  - Cardiac disorder [Unknown]
  - Insomnia [Unknown]
  - Cardiomegaly [Unknown]
  - Electrolyte imbalance [Unknown]
  - Hypertension [Unknown]
